FAERS Safety Report 9126050 (Version 9)
Quarter: 2020Q3

REPORT INFORMATION
  Report Type: Spontaneous
  Country: US (occurrence: US)
  Receive Date: 20130117
  Receipt Date: 20200710
  Transmission Date: 20201103
  Serious: Yes (Hospitalization, Other)
  Sender: FDA-Public Use
  Company Number: US-009507513-1301USA007498

PATIENT
  Sex: Female

DRUGS (11)
  1. ESOMEPRAZOLE. [Concomitant]
     Active Substance: ESOMEPRAZOLE MAGNESIUM
     Dosage: UNK
     Dates: start: 200901, end: 201102
  2. ALENDRONATE SODIUM. [Suspect]
     Active Substance: ALENDRONATE SODIUM
     Dosage: 70MG, QW
     Route: 048
     Dates: start: 20020607
  3. ASCORBIC ACID. [Concomitant]
     Active Substance: ASCORBIC ACID
     Dosage: 500 MG, QD
     Dates: start: 1990
  4. MAXZIDE [Suspect]
     Active Substance: HYDROCHLOROTHIAZIDE\TRIAMTERENE
     Indication: HYPERTENSION
     Dosage: UNK
     Route: 048
     Dates: end: 20110721
  5. VITAMIN E [Concomitant]
     Active Substance: .ALPHA.-TOCOPHEROL
     Dosage: 400 IU, QD
     Dates: start: 1990
  6. FOSAMAX [Suspect]
     Active Substance: ALENDRONATE SODIUM
     Indication: OSTEOPENIA
     Dosage: 10 MG, UNK
     Route: 048
     Dates: start: 200007, end: 200010
  7. FOSAMAX [Suspect]
     Active Substance: ALENDRONATE SODIUM
     Dosage: 70 MG, UNK
     Route: 048
     Dates: start: 200010, end: 200802
  8. ALENDRONATE SODIUM. [Suspect]
     Active Substance: ALENDRONATE SODIUM
     Indication: OSTEOPENIA
     Dosage: 70 MG, UNK
     Route: 048
     Dates: start: 200802, end: 201103
  9. CALCIUM (UNSPECIFIED) (+) VITAMIN D (UNSPECIFIED) [Concomitant]
     Active Substance: CALCIUM CARBONATE\VITAMIN D
     Dosage: 600 MG/400 IU, BID
     Dates: start: 1990
  10. HORMONES (UNSPECIFIED) [Concomitant]
     Active Substance: UNSPECIFIED INGREDIENT
     Dosage: UNK
     Dates: start: 1999, end: 2002
  11. VITAMINS (UNSPECIFIED) [Concomitant]
     Active Substance: VITAMINS
     Dosage: UNK UNK, QD
     Dates: start: 1990

REACTIONS (80)
  - Femur fracture [Recovering/Resolving]
  - Dermatitis [Unknown]
  - Nocturia [Unknown]
  - Fall [Unknown]
  - Carpal tunnel syndrome [Unknown]
  - Oedema [Unknown]
  - Intramedullary rod insertion [Recovered/Resolved]
  - Intramedullary rod insertion [Unknown]
  - Hyponatraemia [Unknown]
  - Diabetes mellitus [Unknown]
  - Transient ischaemic attack [Unknown]
  - Chronic kidney disease [Unknown]
  - Femur fracture [Unknown]
  - Cataract operation [Unknown]
  - Cerumen impaction [Recovered/Resolved]
  - Cerumen removal [Recovered/Resolved]
  - Hypotension [Unknown]
  - Urinary tract infection [Unknown]
  - Skin disorder [Recovered/Resolved]
  - Fatigue [Recovered/Resolved]
  - Nephropathy toxic [Unknown]
  - Arteriosclerosis [Unknown]
  - Presyncope [Unknown]
  - Injury [Unknown]
  - Glaucoma [Unknown]
  - Low turnover osteopathy [Unknown]
  - Hyperlipidaemia [Unknown]
  - Spinal osteoarthritis [Unknown]
  - Gastrooesophageal reflux disease [Unknown]
  - Skin disorder [Unknown]
  - Arthralgia [Unknown]
  - Hyperchloraemia [Unknown]
  - Overweight [Unknown]
  - Blepharitis [Unknown]
  - Synovial cyst [Unknown]
  - Vascular calcification [Unknown]
  - Muscle strain [Unknown]
  - Syncope [Unknown]
  - Cellulitis [Unknown]
  - Hypercholesterolaemia [Unknown]
  - Wrist fracture [Unknown]
  - Varicose vein operation [Unknown]
  - Osteoarthritis [Unknown]
  - Pain in extremity [Unknown]
  - Vulva cyst [Unknown]
  - Chondrocalcinosis [Unknown]
  - Macular degeneration [Unknown]
  - Circulatory collapse [Unknown]
  - Left ventricular hypertrophy [Unknown]
  - Hysterectomy [Unknown]
  - Arthritis [Unknown]
  - Electrolyte imbalance [Unknown]
  - Muscle injury [Unknown]
  - Osteoarthritis [Unknown]
  - Osteoporosis [Unknown]
  - Osteoarthritis [Unknown]
  - Arthropathy [Unknown]
  - Joint noise [Unknown]
  - Urine analysis abnormal [Unknown]
  - Cardiovascular symptom [Unknown]
  - Glucose tolerance impaired [Unknown]
  - Soft tissue swelling [Unknown]
  - Femur fracture [Recovered/Resolved]
  - Medical device removal [Recovered/Resolved]
  - Bile duct stone [Recovered/Resolved]
  - Impaired healing [Unknown]
  - Lumbar spinal stenosis [Unknown]
  - Exostosis [Unknown]
  - Pain [Unknown]
  - Dizziness [Recovered/Resolved]
  - Alkalosis [Unknown]
  - Spinal deformity [Unknown]
  - Adnexa uteri cyst [Unknown]
  - Spinal osteoarthritis [Unknown]
  - Intervertebral disc degeneration [Unknown]
  - Bladder repair [Unknown]
  - Tachycardia paroxysmal [Unknown]
  - Anxiety [Recovered/Resolved]
  - Constipation [Unknown]
  - Cholelithiasis [Unknown]

NARRATIVE: CASE EVENT DATE: 2009
